FAERS Safety Report 19141253 (Version 2)
Quarter: 2021Q3

REPORT INFORMATION
  Report Type: Spontaneous
  Country: US (occurrence: US)
  Receive Date: 20210415
  Receipt Date: 20210817
  Transmission Date: 20211014
  Serious: No
  Sender: FDA-Public Use
  Company Number: US-SA-2021SA123389

PATIENT
  Age: 53 Year
  Sex: Female

DRUGS (10)
  1. OMEPRAZOLE. [Concomitant]
     Active Substance: OMEPRAZOLE
  2. DUPIXENT [Suspect]
     Active Substance: DUPILUMAB
     Indication: DERMATITIS ATOPIC
     Dosage: 300 MG, QOW
     Route: 058
     Dates: start: 20180121
  3. DULOXETINE. [Concomitant]
     Active Substance: DULOXETINE
  4. CLOBETASOL [Concomitant]
     Active Substance: CLOBETASOL
  5. METOPROLOL. [Concomitant]
     Active Substance: METOPROLOL
  6. LISINOPRIL. [Concomitant]
     Active Substance: LISINOPRIL
  7. LISINOPRIL. [Concomitant]
     Active Substance: LISINOPRIL
  8. ESTRADIOL. [Concomitant]
     Active Substance: ESTRADIOL
  9. DULOXETINE. [Concomitant]
     Active Substance: DULOXETINE
  10. HYDROCHLOROTH [Concomitant]
     Active Substance: HYDROCHLOROTHIAZIDE

REACTIONS (1)
  - Dermatitis atopic [Not Recovered/Not Resolved]

NARRATIVE: CASE EVENT DATE: 20210405
